FAERS Safety Report 21335512 (Version 2)
Quarter: 2022Q3

REPORT INFORMATION
  Report Type: Spontaneous
  Country: US (occurrence: US)
  Receive Date: 20220915
  Receipt Date: 20220920
  Transmission Date: 20221027
  Serious: No
  Sender: FDA-Public Use
  Company Number: US-NOVARTISTESTPH-NVSC2022US208039

PATIENT
  Sex: Female

DRUGS (1)
  1. PROMACTA [Suspect]
     Active Substance: ELTROMBOPAG OLAMINE
     Indication: Haemorrhage
     Dosage: 50 MG, QD
     Route: 048
     Dates: start: 20220816, end: 20220912

REACTIONS (2)
  - Contusion [Unknown]
  - Platelet count decreased [Unknown]
